FAERS Safety Report 7130977-5 (Version None)
Quarter: 2010Q4

REPORT INFORMATION
  Report Type: 
  Country: None (occurrence: None)
  Receive Date: 20101201
  Receipt Date: 20101123
  Transmission Date: 20110411
  Serious: Yes (Other)
  Sender: FDA-Public Use
  Company Number: A0882083A

PATIENT
  Age: 78 Year
  Sex: Male

DRUGS (1)
  1. AVANDIA [Suspect]
     Dosage: 4MG PER DAY
     Route: 048
     Dates: start: 20040501, end: 20070801

REACTIONS (12)
  - ABASIA [None]
  - APHASIA [None]
  - CLUMSINESS [None]
  - DYSARTHRIA [None]
  - DYSGRAPHIA [None]
  - DYSPHAGIA [None]
  - HYPOAESTHESIA [None]
  - JOINT RANGE OF MOTION DECREASED [None]
  - MICROANGIOPATHY [None]
  - MYASTHENIA GRAVIS [None]
  - TRANSIENT ISCHAEMIC ATTACK [None]
  - WHEELCHAIR USER [None]
